FAERS Safety Report 6824035-4 (Version None)
Quarter: 2010Q3

REPORT INFORMATION
  Report Type: 
  Country: None (occurrence: None)
  Receive Date: 20100708
  Receipt Date: 20070110
  Transmission Date: 20110219
  Serious: No
  Sender: FDA-Public Use
  Company Number: US-PFIZER INC-2006118730

PATIENT
  Sex: Female
  Weight: 95.25 kg

DRUGS (9)
  1. CHANTIX [Suspect]
     Indication: SMOKING CESSATION THERAPY
     Dates: start: 20060925, end: 20060928
  2. PREDNISONE [Suspect]
     Indication: DYSPNOEA
  3. NEXIUM [Concomitant]
  4. NIFEDIPINE [Concomitant]
  5. DICLOFENAC SODIUM [Concomitant]
  6. EFFEXOR [Concomitant]
  7. LIPITOR [Concomitant]
  8. MONTELUKAST [Concomitant]
  9. OXYGEN [Concomitant]
     Indication: DYSPNOEA

REACTIONS (11)
  - DIZZINESS [None]
  - FATIGUE [None]
  - HEADACHE [None]
  - IMPAIRED DRIVING ABILITY [None]
  - IMPAIRED WORK ABILITY [None]
  - MALAISE [None]
  - MEDICATION ERROR [None]
  - NAUSEA [None]
  - PARAESTHESIA [None]
  - SOMNOLENCE [None]
  - WEIGHT INCREASED [None]
